FAERS Safety Report 24948300 (Version 2)
Quarter: 2025Q1

REPORT INFORMATION
  Report Type: Spontaneous
  Country: US (occurrence: US)
  Receive Date: 20250210
  Receipt Date: 20250317
  Transmission Date: 20250409
  Serious: No
  Sender: GRAVITI PHARMACEUTICALS PRIVATE LIMITED
  Company Number: US-GRAVITIPHARMA-GRA-2411-US-SPO-0606

PATIENT
  Age: 46 Year
  Sex: Male
  Weight: 79.3 kg

DRUGS (1)
  1. ESCITALOPRAM [Suspect]
     Active Substance: ESCITALOPRAM OXALATE
     Indication: Product used for unknown indication
     Route: 048
     Dates: start: 20241005, end: 20241020

REACTIONS (14)
  - Paraesthesia [Recovered/Resolved]
  - Feeling jittery [Recovered/Resolved]
  - Agitation [Recovered/Resolved]
  - Confusional state [Recovered/Resolved]
  - Brain fog [Recovered/Resolved]
  - Disturbance in attention [Recovered/Resolved]
  - Condition aggravated [Recovered/Resolved]
  - Feeling abnormal [Recovered/Resolved]
  - Adulterated product [Unknown]
  - Product substitution issue [Recovered/Resolved]
  - Hyperhidrosis [Unknown]
  - Product label issue [Unknown]
  - Therapeutic response decreased [Unknown]
  - Product substitution issue [Unknown]
